FAERS Safety Report 13744871 (Version 2)
Quarter: 2017Q3

REPORT INFORMATION
  Report Type: Spontaneous
  Country: US (occurrence: US)
  Receive Date: 20170712
  Receipt Date: 20170717
  Transmission Date: 20171127
  Serious: No
  Sender: FDA-Public Use
  Company Number: US-PFIZER INC-2017300730

PATIENT

DRUGS (2)
  1. OESTROGEN(DIETHYLSTILBESTROL [Suspect]
     Active Substance: DIETHYLSTILBESTROL
  2. GABAPENTIN. [Suspect]
     Active Substance: GABAPENTIN

REACTIONS (1)
  - Gynaecomastia [Unknown]
